FAERS Safety Report 9892517 (Version 8)
Quarter: 2014Q3

REPORT INFORMATION
  Report Type: Spontaneous
  Country: BR (occurrence: BR)
  Receive Date: 20140212
  Receipt Date: 20140715
  Transmission Date: 20150326
  Serious: Yes (Other)
  Sender: FDA-Public Use
  Company Number: BR-ABBVIE-14P-020-1201322-00

PATIENT
  Age: 15 Year
  Sex: Female
  Weight: 32 kg

DRUGS (3)
  1. DEPAKENE [Suspect]
     Active Substance: VALPROIC ACID
     Dates: start: 2000, end: 2010
  2. DEPAKENE [Suspect]
     Active Substance: VALPROIC ACID
     Indication: CONVULSION
     Dates: start: 2010, end: 201403
  3. DEPAKENE [Suspect]
     Active Substance: VALPROIC ACID
     Dates: start: 201403

REACTIONS (8)
  - Spinal operation [Recovered/Resolved]
  - Convulsion [Recovered/Resolved]
  - Chills [Unknown]
  - Wrong technique in drug usage process [Unknown]
  - Convulsion [Recovered/Resolved]
  - Product physical issue [Unknown]
  - Product colour issue [Unknown]
  - Poor quality drug administered [Unknown]

NARRATIVE: CASE EVENT DATE: 201402
